FAERS Safety Report 9297360 (Version 2)
Quarter: 2013Q2

REPORT INFORMATION
  Report Type: Spontaneous
  Country: US (occurrence: US)
  Receive Date: 20130520
  Receipt Date: 20130529
  Transmission Date: 20140414
  Serious: No
  Sender: FDA-Public Use
  Company Number: US-BIOGENIDEC-2013BI044577

PATIENT
  Sex: Female

DRUGS (3)
  1. TYSABRI [Suspect]
     Indication: MULTIPLE SCLEROSIS
     Route: 042
     Dates: start: 20080110, end: 20100519
  2. TYSABRI [Suspect]
     Indication: MULTIPLE SCLEROSIS
     Route: 042
     Dates: start: 20100809
  3. SYNTHROID [Concomitant]
     Indication: HYPERTHYROIDISM
     Route: 048
     Dates: start: 1993

REACTIONS (6)
  - Anxiety [Unknown]
  - Hypoaesthesia [Not Recovered/Not Resolved]
  - Nasopharyngitis [Recovered/Resolved]
  - Bronchitis [Recovered/Resolved]
  - Multiple sclerosis relapse [Not Recovered/Not Resolved]
  - Fatigue [Recovered/Resolved]
